FAERS Safety Report 8564888-5 (Version None)
Quarter: 2012Q3

REPORT INFORMATION
  Report Type: 
  Country: None (occurrence: None)
  Receive Date: 20120803
  Receipt Date: 20120726
  Transmission Date: 20120928
  Serious: No
  Sender: FDA-Public Use
  Company Number: US-B.I. PHARMACEUTICALS,INC./RIDGEFIELD-2012-BP-16681BP

PATIENT
  Sex: Male

DRUGS (11)
  1. LISINOPRIL [Concomitant]
     Indication: BLOOD PRESSURE
     Dosage: 10 MG
     Route: 048
  2. NORVASC [Concomitant]
     Indication: BLOOD PRESSURE
     Dosage: 5 MG
     Route: 048
     Dates: end: 20120518
  3. OTC ALLERGY PILL [Concomitant]
     Indication: HYPERSENSITIVITY
  4. ASPIRIN [Concomitant]
     Indication: CARDIAC DISORDER
     Dosage: 81 MG
     Route: 048
  5. VYTORIN [Concomitant]
     Indication: BLOOD CHOLESTEROL
     Route: 048
  6. PRADAXA [Suspect]
     Indication: ATRIAL FIBRILLATION
     Dosage: 300 MG
     Route: 048
     Dates: start: 20120401
  7. OTC NASAL SPRAY [Concomitant]
     Indication: HYPERSENSITIVITY
  8. COQ10 [Concomitant]
     Indication: SUPPLEMENTATION THERAPY
  9. METOPROLOL TARTRATE [Concomitant]
     Indication: BLOOD PRESSURE
  10. VITAMIN B-12 [Concomitant]
     Indication: SUPPLEMENTATION THERAPY
  11. FISH OIL [Concomitant]
     Indication: SUPPLEMENTATION THERAPY

REACTIONS (6)
  - ABDOMINAL DISCOMFORT [None]
  - JOINT SWELLING [None]
  - ATRIAL FIBRILLATION [None]
  - PAIN IN EXTREMITY [None]
  - MUSCULOSKELETAL PAIN [None]
  - BLOOD PRESSURE ABNORMAL [None]
